FAERS Safety Report 4753065-1 (Version None)
Quarter: 2005Q3

REPORT INFORMATION
  Report Type: 
  Country: None (occurrence: None)
  Receive Date: 20050826
  Receipt Date: 20050315
  Transmission Date: 20060218
  Serious: Yes (Other)
  Sender: FDA-Public Use
  Company Number: US-MERCK-0503USA02944

PATIENT
  Age: 57 Year
  Sex: Male
  Weight: 75 kg

DRUGS (5)
  1. VIOXX [Suspect]
     Indication: ARTHRALGIA
     Route: 048
     Dates: start: 20001201, end: 20010901
  2. VIOXX [Suspect]
     Route: 048
     Dates: start: 20001201, end: 20010901
  3. ZESTORETIC [Concomitant]
     Indication: HYPERTENSION
     Route: 048
     Dates: start: 20010101, end: 20040101
  4. COMBIVENT [Concomitant]
     Route: 065
  5. TOPROL-XL [Concomitant]
     Route: 048
     Dates: start: 19920101

REACTIONS (2)
  - BLOOD CHOLESTEROL INCREASED [None]
  - CEREBROVASCULAR ACCIDENT [None]
